FAERS Safety Report 6594148-3 (Version None)
Quarter: 2010Q1

REPORT INFORMATION
  Report Type: 
  Country: None (occurrence: None)
  Receive Date: 20100222
  Receipt Date: 20100208
  Transmission Date: 20100710
  Serious: Yes (Hospitalization, Other)
  Sender: FDA-Public Use
  Company Number: PT-CELGENEUS-130-21880-09121512

PATIENT
  Age: 56 Year
  Sex: Female

DRUGS (6)
  1. REVLIMID [Suspect]
     Indication: MULTIPLE MYELOMA
     Route: 048
     Dates: start: 20091203
  2. REVLIMID [Suspect]
     Route: 048
     Dates: start: 20091217
  3. DEXAMETHASONE [Concomitant]
     Indication: MULTIPLE MYELOMA
     Route: 048
  4. SINEMET [Concomitant]
     Indication: PARKINSON'S DISEASE
     Dosage: 25/100
     Route: 065
  5. PARLODEL [Concomitant]
     Indication: PARKINSON'S DISEASE
     Route: 065
  6. SINEMET CR [Concomitant]
     Indication: PARKINSON'S DISEASE
     Route: 065

REACTIONS (4)
  - ERYSIPELAS [None]
  - LEUKOPENIA [None]
  - PARKINSON'S DISEASE [None]
  - PNEUMONIA [None]
